FAERS Safety Report 6407910-4 (Version None)
Quarter: 2009Q4

REPORT INFORMATION
  Report Type: 
  Country: None (occurrence: None)
  Receive Date: 20091016
  Receipt Date: 20090917
  Transmission Date: 20100525
  Serious: Yes (Death)
  Sender: FDA-Public Use
  Company Number: 87461 -1

PATIENT
  Age: 50 Year
  Sex: Male

DRUGS (1)
  1. LEUCOVRIN CALCIUM FOR INJ. 50MG -BEDFORD LABS, INC. [Suspect]
     Indication: COLORECTAL CANCER METASTATIC
     Dosage: 851MG
     Dates: start: 20090518, end: 20090902

REACTIONS (2)
  - ACUTE MYOCARDIAL INFARCTION [None]
  - SUDDEN DEATH [None]
